FAERS Safety Report 12543714 (Version 1)
Quarter: 2016Q3

REPORT INFORMATION
  Report Type: Spontaneous
  Country: US (occurrence: None)
  Receive Date: 20160708
  Receipt Date: 20160708
  Transmission Date: 20161109
  Serious: Yes (Disabling)
  Sender: FDA-Public Use
  Company Number: None

PATIENT
  Age: 57 Year
  Sex: Female
  Weight: 114.31 kg

DRUGS (10)
  1. VISTARIL [Concomitant]
     Active Substance: HYDROXYZINE PAMOATE
  2. XIFAXAN [Concomitant]
     Active Substance: RIFAXIMIN
  3. ALDACTONE [Concomitant]
     Active Substance: SPIRONOLACTONE
  4. TRAZODONE [Concomitant]
     Active Substance: TRAZODONE HYDROCHLORIDE
  5. PREDNISONE. [Concomitant]
     Active Substance: PREDNISONE
  6. PROZAC [Concomitant]
     Active Substance: FLUOXETINE HYDROCHLORIDE
  7. SYNTHROID [Concomitant]
     Active Substance: LEVOTHYROXINE SODIUM
  8. PREMARIN [Concomitant]
     Active Substance: ESTROGENS, CONJUGATED
  9. GLEEVEC [Suspect]
     Active Substance: IMATINIB MESYLATE
     Indication: CHRONIC MYELOID LEUKAEMIA
     Route: 048
     Dates: start: 20160608, end: 20160705
  10. LASIX [Concomitant]
     Active Substance: FUROSEMIDE

REACTIONS (23)
  - Rash [None]
  - Oral mucosal exfoliation [None]
  - Insomnia [None]
  - Decreased appetite [None]
  - Diarrhoea [None]
  - Joint swelling [None]
  - Fatigue [None]
  - Corneal bleeding [None]
  - Cheilitis [None]
  - Gait disturbance [None]
  - Eyelid oedema [None]
  - Pain of skin [None]
  - Dyspnoea [None]
  - Secretion discharge [None]
  - Abdominal pain upper [None]
  - Corneal abrasion [None]
  - Nausea [None]
  - Hepatic pain [None]
  - Headache [None]
  - Periorbital oedema [None]
  - Cough [None]
  - Arthralgia [None]
  - Oral pain [None]

NARRATIVE: CASE EVENT DATE: 20160608
